FAERS Safety Report 26102467 (Version 1)
Quarter: 2025Q4

REPORT INFORMATION
  Report Type: Spontaneous
  Country: EU (occurrence: EU)
  Receive Date: 20251128
  Receipt Date: 20251128
  Transmission Date: 20260119
  Serious: Yes (Other)
  Sender: PFIZER
  Company Number: None

PATIENT
  Age: 83 Year
  Sex: Male

DRUGS (4)
  1. RIFABUTIN [Suspect]
     Active Substance: RIFABUTIN
     Indication: Mycobacterium avium complex infection
     Dosage: 300 MG, 1X/DAY
     Route: 048
     Dates: start: 20250419, end: 20250515
  2. RIFABUTIN [Suspect]
     Active Substance: RIFABUTIN
     Dosage: 450 MG, 1X/DAY
     Route: 048
     Dates: start: 20250516, end: 20250814
  3. CLARITHROMYCIN [Suspect]
     Active Substance: CLARITHROMYCIN
     Indication: Mycobacterium avium complex infection
     Dosage: 500 MG, 2X/DAY
     Route: 048
     Dates: start: 20250419, end: 20250814
  4. ETHAMBUTOL [Suspect]
     Active Substance: ETHAMBUTOL HYDROCHLORIDE
     Indication: Mycobacterium avium complex infection
     Dosage: 750 MG, 1X/DAY
     Route: 048
     Dates: start: 20250419, end: 20250814

REACTIONS (2)
  - Hepatic cytolysis [Recovered/Resolved]
  - Cholestasis [Recovered/Resolved]

NARRATIVE: CASE EVENT DATE: 20250731
